FAERS Safety Report 18079848 (Version 1)
Quarter: 2020Q3

REPORT INFORMATION
  Report Type: Spontaneous
  Country: US (occurrence: US)
  Receive Date: 20200728
  Receipt Date: 20200728
  Transmission Date: 20201103
  Serious: No
  Sender: FDA-Public Use
  Company Number: US-ASTRAZENECA-2020SE94173

PATIENT
  Age: 49 Year
  Sex: Male

DRUGS (2)
  1. PRILOSEC OTC [Suspect]
     Active Substance: OMEPRAZOLE MAGNESIUM
     Dosage: 2 TABLET, EVENING
     Route: 048
     Dates: start: 20200706, end: 20200706
  2. PRILOSEC OTC [Suspect]
     Active Substance: OMEPRAZOLE MAGNESIUM
     Dosage: 1 TABLET, 1 /DAY
     Route: 048

REACTIONS (5)
  - Inappropriate schedule of product administration [Unknown]
  - Faeces discoloured [Not Recovered/Not Resolved]
  - Defaecation urgency [Unknown]
  - Hypertension [Not Recovered/Not Resolved]
  - Accidental overdose [Unknown]

NARRATIVE: CASE EVENT DATE: 20200706
